FAERS Safety Report 15463074 (Version 1)
Quarter: 2018Q4

REPORT INFORMATION
  Report Type: Spontaneous
  Country: US (occurrence: US)
  Receive Date: 20181001
  Receipt Date: 20181001
  Transmission Date: 20190204
  Serious: Yes (Hospitalization)
  Sender: FDA-Public Use
  Company Number: None

PATIENT
  Age: 50 Year
  Sex: Male
  Weight: 115.85 kg

DRUGS (10)
  1. NOVOLOG [Concomitant]
     Active Substance: INSULIN ASPART
  2. ALDACTONE [Concomitant]
     Active Substance: SPIRONOLACTONE
  3. LANTUS [Concomitant]
     Active Substance: INSULIN GLARGINE
  4. COLACE [Concomitant]
     Active Substance: DOCUSATE SODIUM
  5. LACTULOSE. [Concomitant]
     Active Substance: LACTULOSE
  6. LOPRESSOR [Concomitant]
     Active Substance: METOPROLOL TARTRATE
  7. RIBAVIRIN 600 MG [Suspect]
     Active Substance: RIBAVIRIN
     Route: 048
  8. EPCLUSA [Suspect]
     Active Substance: SOFOSBUVIR\VELPATASVIR
     Indication: HEPATITIS C
     Route: 048
     Dates: start: 20180214, end: 20180510
  9. CLARITIN [Concomitant]
     Active Substance: LORATADINE
  10. GLUCOPHAGE [Concomitant]
     Active Substance: METFORMIN HYDROCHLORIDE

REACTIONS (3)
  - Abdominal pain [None]
  - Nausea [None]
  - Contusion [None]

NARRATIVE: CASE EVENT DATE: 20180416
